FAERS Safety Report 5955204-3 (Version None)
Quarter: 2008Q4

REPORT INFORMATION
  Report Type: 
  Country: None (occurrence: None)
  Receive Date: 20081117
  Receipt Date: 20081106
  Transmission Date: 20090506
  Serious: Yes (Hospitalization)
  Sender: FDA-Public Use
  Company Number: JP-BAYER-200812703BYL

PATIENT
  Age: 64 Year
  Sex: Male
  Weight: 63 kg

DRUGS (2)
  1. NEXAVAR [Suspect]
     Indication: RENAL CELL CARCINOMA STAGE IV
     Dosage: UNIT DOSE: 200 MG
     Route: 048
     Dates: start: 20080620, end: 20080704
  2. NEXAVAR [Suspect]
     Dosage: UNIT DOSE: 200 MG
     Route: 048
     Dates: start: 20080704, end: 20080718

REACTIONS (2)
  - HYPERTHYROIDISM [None]
  - PALMAR-PLANTAR ERYTHRODYSAESTHESIA SYNDROME [None]
